FAERS Safety Report 9491121 (Version 2)
Quarter: 2013Q4

REPORT INFORMATION
  Report Type: Report from Study
  Country: SE (occurrence: SE)
  Receive Date: 20130830
  Receipt Date: 20131004
  Transmission Date: 20140711
  Serious: Yes (Life-Threatening)
  Sender: FDA-Public Use
  Company Number: SE-UCBSA-096431

PATIENT
  Age: 47 Year
  Sex: Male

DRUGS (3)
  1. CIMZIA [Suspect]
     Indication: ANKYLOSING SPONDYLITIS
     Dosage: 200 MG
     Route: 058
     Dates: start: 20111004, end: 20111101
  2. BETAPRED [Concomitant]
     Dosage: 0.5 MG, 1.75, 1.75 MG
     Dates: start: 20080201
  3. ROACTEMRA [Concomitant]
     Dates: start: 20091227, end: 20111003

REACTIONS (2)
  - Rectal cancer [Unknown]
  - Metastases to lung [Unknown]
